FAERS Safety Report 4384779-3 (Version None)
Quarter: 2004Q2

REPORT INFORMATION
  Report Type: 
  Country: None (occurrence: None)
  Receive Date: 20040621
  Receipt Date: 20040603
  Transmission Date: 20050107
  Serious: Yes (Death, Hospitalization)
  Sender: FDA-Public Use
  Company Number: S04-BEL-02509-01

PATIENT
  Age: 55 Year
  Sex: Female

DRUGS (4)
  1. ESCITALOPRAM OXALATE [Suspect]
     Indication: DEPRESSION
     Dosage: 20 MG QD PO
     Route: 048
     Dates: start: 20040401
  2. TRAZOLAN (TRAZODONE HYDROCHLORIDE) [Concomitant]
  3. BURONIL (MELPERONE HYDROCHLORIDE) [Concomitant]
  4. ZYPREXA [Concomitant]

REACTIONS (3)
  - CEREBROVASCULAR ACCIDENT [None]
  - COMPLETED SUICIDE [None]
  - SEROTONIN SYNDROME [None]
